FAERS Safety Report 5028384-4 (Version None)
Quarter: 2006Q2

REPORT INFORMATION
  Report Type: 
  Country: None (occurrence: None)
  Receive Date: 20060613
  Receipt Date: 20060530
  Transmission Date: 20061013
  Serious: Yes (Other)
  Sender: FDA-Public Use
  Company Number: TRP_0791_2006

PATIENT
  Sex: Male

DRUGS (1)
  1. RIBASPHERE [Suspect]
     Indication: HEPATITIS C
     Dosage: DF PO
     Route: 048

REACTIONS (4)
  - ANAEMIA [None]
  - CARDIAC DISORDER [None]
  - MALAISE [None]
  - MULTI-ORGAN DISORDER [None]
